FAERS Safety Report 20903654 (Version 1)
Quarter: 2022Q2

REPORT INFORMATION
  Report Type: Spontaneous
  Country: US (occurrence: US)
  Receive Date: 20220602
  Receipt Date: 20220602
  Transmission Date: 20220721
  Serious: No
  Sender: FDA-Public Use
  Company Number: US-BRISTOL-MYERS SQUIBB COMPANY-2022-037477

PATIENT
  Age: 71 Year
  Sex: Female
  Weight: 112.04 kg

DRUGS (1)
  1. REVLIMID [Suspect]
     Active Substance: LENALIDOMIDE
     Indication: Plasma cell myeloma
     Dosage: FREQUENCY: DAY 1-14 Q 21 DAYS.
     Route: 048
     Dates: start: 20211203

REACTIONS (8)
  - Flatulence [Unknown]
  - Hypoaesthesia oral [Unknown]
  - Nausea [Unknown]
  - Abdominal discomfort [Unknown]
  - Diarrhoea [Unknown]
  - Constipation [Unknown]
  - Nervous system disorder [Unknown]
  - Intentional product use issue [Unknown]
